FAERS Safety Report 7626747-1 (Version None)
Quarter: 2011Q3

REPORT INFORMATION
  Report Type: 
  Country: None (occurrence: None)
  Receive Date: 20110721
  Receipt Date: 20110709
  Transmission Date: 20111222
  Serious: Yes (Hospitalization)
  Sender: FDA-Public Use
  Company Number: GB-ELI_LILLY_AND_COMPANY-GB201107002950

PATIENT
  Sex: Male

DRUGS (1)
  1. ZYPREXA [Suspect]
     Indication: MANIA
     Dosage: 20 MG, QD
     Dates: start: 20030101, end: 20070101

REACTIONS (5)
  - DIABETES MELLITUS [None]
  - OFF LABEL USE [None]
  - LIVER DISORDER [None]
  - POLLAKIURIA [None]
  - URINARY INCONTINENCE [None]
